FAERS Safety Report 4918776-3 (Version None)
Quarter: 2006Q1

REPORT INFORMATION
  Report Type: 
  Country: None (occurrence: None)
  Receive Date: 20060222
  Receipt Date: 20060214
  Transmission Date: 20060701
  Serious: Yes (Other)
  Sender: FDA-Public Use
  Company Number: NL-JNJFOC-20060204335

PATIENT
  Sex: Male
  Weight: 90 kg

DRUGS (1)
  1. HALOPERIDOL DECANOATE [Suspect]
     Dosage: 50MG/ML
     Route: 065
     Dates: start: 20041019, end: 20050113

REACTIONS (6)
  - BALANCE DISORDER [None]
  - DIFFICULTY IN WALKING [None]
  - FEELING ABNORMAL [None]
  - GYNAECOMASTIA [None]
  - PARKINSONISM [None]
  - TREMOR [None]
